FAERS Safety Report 21559296 (Version 1)
Quarter: 2022Q4

REPORT INFORMATION
  Report Type: Spontaneous
  Country: US (occurrence: US)
  Receive Date: 20221107
  Receipt Date: 20221107
  Transmission Date: 20230113
  Serious: No
  Sender: FDA-Public Use
  Company Number: US-Accord-247552

PATIENT
  Age: 27 Year
  Sex: Female

DRUGS (1)
  1. ESCITALOPRAM [Suspect]
     Active Substance: ESCITALOPRAM OXALATE
     Indication: Product used for unknown indication
     Dosage: STRENGTH: 10 MG

REACTIONS (4)
  - Anxiety [Unknown]
  - Supraventricular tachycardia [Unknown]
  - Emotional distress [Unknown]
  - Product substitution issue [Unknown]
